FAERS Safety Report 18233958 (Version 13)
Quarter: 2022Q3

REPORT INFORMATION
  Report Type: Report from Study
  Country: CN (occurrence: CN)
  Receive Date: 20200904
  Receipt Date: 20220901
  Transmission Date: 20221027
  Serious: Yes (Other)
  Sender: FDA-Public Use
  Company Number: CN-BRISTOL-MYERS SQUIBB COMPANY-BMS-2020-070121

PATIENT
  Age: 77 Year
  Sex: Male

DRUGS (4)
  1. NIVOLUMAB [Suspect]
     Active Substance: NIVOLUMAB
     Indication: Non-small cell lung cancer
     Dosage: 140 MILLIGRAM, Q3WK
     Route: 041
     Dates: start: 20190730
  2. NIVOLUMAB [Suspect]
     Active Substance: NIVOLUMAB
     Dosage: 140 MG ONCE EVERY 2 MONTHS
     Route: 042
  3. NIVOLUMAB [Suspect]
     Active Substance: NIVOLUMAB
     Dosage: 140 MILLIGRAM, Q4WK
     Route: 042
     Dates: start: 202003
  4. NIVOLUMAB [Suspect]
     Active Substance: NIVOLUMAB
     Dosage: 140 MILLIGRAM, Q3WK
     Route: 042
     Dates: start: 20220111

REACTIONS (6)
  - Cerebrovascular accident [Unknown]
  - Discomfort [Unknown]
  - Movement disorder [Unknown]
  - Gait disturbance [Unknown]
  - Off label use [Unknown]
  - Fall [Unknown]

NARRATIVE: CASE EVENT DATE: 20200101
